FAERS Safety Report 7230017-3 (Version None)
Quarter: 2011Q1

REPORT INFORMATION
  Report Type: 
  Country: None (occurrence: None)
  Receive Date: 20110117
  Receipt Date: 20110103
  Transmission Date: 20110831
  Serious: Yes (Other)
  Sender: FDA-Public Use
  Company Number: US-BAYER-2011-001517

PATIENT
  Sex: Female

DRUGS (3)
  1. OMNISCAN [Suspect]
     Indication: NUCLEAR MAGNETIC RESONANCE IMAGING
  2. MAGNEVIST [Suspect]
     Indication: NUCLEAR MAGNETIC RESONANCE IMAGING
  3. OPTIMARK [Suspect]
     Indication: NUCLEAR MAGNETIC RESONANCE IMAGING

REACTIONS (7)
  - FIBROSIS [None]
  - NEPHROGENIC SYSTEMIC FIBROSIS [None]
  - SCAR [None]
  - MOBILITY DECREASED [None]
  - GENERAL PHYSICAL HEALTH DETERIORATION [None]
  - DEFORMITY [None]
  - PAIN [None]
